FAERS Safety Report 18773707 (Version 1)
Quarter: 2021Q1

REPORT INFORMATION
  Report Type: Spontaneous
  Country: US (occurrence: US)
  Receive Date: 20210121
  Receipt Date: 20210121
  Transmission Date: 20210419
  Serious: Yes (Hospitalization)
  Sender: FDA-Public Use
  Company Number: None

PATIENT
  Age: 4 Year
  Sex: Male

DRUGS (3)
  1. MYCOPHENOLATE 200MG/ML SUSP [Suspect]
     Active Substance: MYCOPHENOLATE MOFETIL
     Indication: RENAL TRANSPLANT
     Route: 048
     Dates: start: 20191203
  2. RANITIDINE. [Concomitant]
     Active Substance: RANITIDINE
  3. TACROLIMUS 0.5MG/ML ORAL SUSP [Suspect]
     Active Substance: TACROLIMUS
     Indication: RENAL TRANSPLANT
     Dosage: ?          OTHER DOSE:3.2ML (1.6MG);OTHER ROUTE:PO ? SHAKE WELL?
     Dates: start: 20191203

REACTIONS (1)
  - Biopsy [None]

NARRATIVE: CASE EVENT DATE: 20210121
